FAERS Safety Report 26034284 (Version 1)
Quarter: 2025Q4

REPORT INFORMATION
  Report Type: Spontaneous
  Country: US (occurrence: None)
  Receive Date: 20251111
  Receipt Date: 20251111
  Transmission Date: 20260117
  Serious: Yes (Hospitalization)
  Sender: FDA-CTU
  Company Number: None

PATIENT
  Age: 71 Year
  Sex: Male

DRUGS (1)
  1. INLYTA [Suspect]
     Active Substance: AXITINIB
     Dosage: 1MG TWICE A DAY ?

REACTIONS (5)
  - Hypotension [None]
  - Dialysis [None]
  - Chest pain [None]
  - Bone pain [None]
  - Dyspnoea [None]
